FAERS Safety Report 17157169 (Version 1)
Quarter: 2019Q4

REPORT INFORMATION
  Report Type: Report from Study
  Country: US (occurrence: US)
  Receive Date: 20191216
  Receipt Date: 20191216
  Transmission Date: 20200122
  Serious: Yes (Other)
  Sender: FDA-Public Use
  Company Number: US-ROCHE-2493847

PATIENT
  Sex: Female

DRUGS (1)
  1. OCREVUS [Suspect]
     Active Substance: OCRELIZUMAB
     Indication: RELAPSING MULTIPLE SCLEROSIS
     Dosage: ON 02/NOV/2017, 01/FEB/2018, 03/AUG/2018 AND 01/FEB/2019, SHE RECEIVED OCRELIZUMAB INFUSION.
     Route: 065
     Dates: start: 20171018

REACTIONS (2)
  - Ulcer [Unknown]
  - Cellulitis [Unknown]
